FAERS Safety Report 14054584 (Version 1)
Quarter: 2017Q4

REPORT INFORMATION
  Report Type: Spontaneous
  Country: US (occurrence: None)
  Receive Date: 20171006
  Receipt Date: 20171006
  Transmission Date: 20180321
  Serious: No
  Sender: FDA-Public Use
  Company Number: None

PATIENT

DRUGS (1)
  1. 1% AND 2% BOTTLES OF 20ML LIDOCAINE INJECTION [Suspect]
     Active Substance: LIDOCAINE

REACTIONS (2)
  - Product label confusion [None]
  - Device colour issue [None]
